FAERS Safety Report 5735095-6 (Version None)
Quarter: 2008Q2

REPORT INFORMATION
  Report Type: 
  Country: None (occurrence: None)
  Receive Date: 20080512
  Receipt Date: 20080505
  Transmission Date: 20081010
  Serious: Yes (Other)
  Sender: FDA-Public Use
  Company Number: ZA-ASTRAZENECA-2008SE01939

PATIENT
  Age: 44 Year
  Sex: Female
  Weight: 64 kg

DRUGS (1)
  1. SYMBICORD [Suspect]
     Indication: ASTHMA
     Dosage: TWO PUFFS 160/4.5 MICROGRAM
     Route: 055
     Dates: start: 20040101

REACTIONS (1)
  - THROAT IRRITATION [None]
